FAERS Safety Report 6635438-5 (Version None)
Quarter: 2010Q1

REPORT INFORMATION
  Report Type: 
  Country: None (occurrence: None)
  Receive Date: 20100315
  Receipt Date: 20090804
  Transmission Date: 20100710
  Serious: No
  Sender: FDA-Public Use
  Company Number: US-ABBOTT-09P-163-0589329-00

PATIENT
  Sex: Male
  Weight: 64.468 kg

DRUGS (3)
  1. DEPAKOTE [Suspect]
     Indication: PETIT MAL EPILEPSY
     Dates: start: 19980101
  2. DEPAKOTE [Suspect]
  3. DEPAKOTE ER [Suspect]
     Indication: PETIT MAL EPILEPSY

REACTIONS (9)
  - ASTHENIA [None]
  - BRONCHITIS [None]
  - DIARRHOEA [None]
  - DRUG DISPENSING ERROR [None]
  - INFLUENZA [None]
  - OROPHARYNGEAL PAIN [None]
  - PYREXIA [None]
  - SOMNOLENCE [None]
  - THROMBOCYTOPENIA [None]
